FAERS Safety Report 9438537 (Version 3)
Quarter: 2016Q1

REPORT INFORMATION
  Report Type: Spontaneous
  Country: US (occurrence: US)
  Receive Date: 20130802
  Receipt Date: 20160304
  Transmission Date: 20160526
  Serious: Yes (Hospitalization, Other)
  Sender: FDA-Public Use
  Company Number: US-GLAXOSMITHKLINE-A1035037A

PATIENT
  Age: 12 Year
  Sex: Female

DRUGS (5)
  1. LAMICTAL [Interacting]
     Active Substance: LAMOTRIGINE
     Indication: EPILEPSY
     Dosage: 300 MG TABLET, 2 TIMES PER DAY.
     Route: 048
     Dates: start: 198808
  2. LAMOTRIGINE. [Suspect]
     Active Substance: LAMOTRIGINE
     Route: 065
  3. DEPAKOTE [Concomitant]
     Active Substance: DIVALPROEX SODIUM
  4. LAMICTAL [Interacting]
     Active Substance: LAMOTRIGINE
     Indication: SEIZURE
     Dosage: 150 MG, UNK
     Dates: start: 20081210
  5. ZONISAMIDE. [Concomitant]
     Active Substance: ZONISAMIDE

REACTIONS (11)
  - Generalised tonic-clonic seizure [Not Recovered/Not Resolved]
  - Joint injury [Unknown]
  - Alopecia [Not Recovered/Not Resolved]
  - Dizziness [Not Recovered/Not Resolved]
  - Seizure [Not Recovered/Not Resolved]
  - Drug interaction [Not Recovered/Not Resolved]
  - Petit mal epilepsy [Not Recovered/Not Resolved]
  - Drug ineffective [Unknown]
  - Loss of consciousness [Unknown]
  - Gallbladder operation [Recovered/Resolved]
  - Fall [Unknown]

NARRATIVE: CASE EVENT DATE: 198809
